FAERS Safety Report 17312536 (Version 1)
Quarter: 2020Q1

REPORT INFORMATION
  Report Type: Report from Study
  Country: US (occurrence: US)
  Receive Date: 20200123
  Receipt Date: 20200123
  Transmission Date: 20200409
  Serious: No
  Sender: FDA-Public Use
  Company Number: NVSC2020US016969

PATIENT
  Age: 73 Year
  Sex: Female

DRUGS (1)
  1. ENTRESTO [Suspect]
     Active Substance: SACUBITRIL\VALSARTAN
     Indication: CARDIAC FAILURE
     Dosage: 50 MG, BID (24MG SACUBITRIL /26MGVALSARTAN)
     Route: 048
     Dates: start: 20200117

REACTIONS (8)
  - Weight decreased [Unknown]
  - Diarrhoea [Unknown]
  - Hot flush [Unknown]
  - Hyperhidrosis [Unknown]
  - Feeling hot [Unknown]
  - Dizziness [Unknown]
  - Asthenia [Unknown]
  - Nausea [Unknown]

NARRATIVE: CASE EVENT DATE: 20200117
